FAERS Safety Report 10057984 (Version 1)
Quarter: 2014Q2

REPORT INFORMATION
  Report Type: Report from Study
  Country: DE (occurrence: DE)
  Receive Date: 20140404
  Receipt Date: 20140404
  Transmission Date: 20141212
  Serious: Yes (Other)
  Sender: FDA-Public Use
  Company Number: DE-ROCHE-1377383

PATIENT
  Sex: 0

DRUGS (9)
  1. RITUXIMAB [Suspect]
     Indication: NON-HODGKIN^S LYMPHOMA
     Dosage: ON DAY 1
     Route: 042
  2. RITUXIMAB [Suspect]
     Dosage: ON DAY -5
     Route: 042
  3. DEXAMETHASONE [Suspect]
     Indication: NON-HODGKIN^S LYMPHOMA
     Dosage: ON DAY 1-4
     Route: 042
  4. CYTARABINE [Suspect]
     Indication: NON-HODGKIN^S LYMPHOMA
     Dosage: ON DAY 3
     Route: 042
  5. CISPLATINUM [Suspect]
     Indication: NON-HODGKIN^S LYMPHOMA
     Dosage: OVER 24 HR ON DAY 1
     Route: 042
  6. ETOPOSIDE [Suspect]
     Indication: NON-HODGKIN^S LYMPHOMA
     Dosage: ON DAYS -4 TO -2
     Route: 042
  7. TREOSULFAN [Suspect]
     Indication: NON-HODGKIN^S LYMPHOMA
     Dosage: 14 G/M2/DAY ON DAYS -4 TO -2
     Route: 042
  8. CARBOPLATINUM [Suspect]
     Indication: NON-HODGKIN^S LYMPHOMA
     Dosage: ON DAYS -4 TO -2
     Route: 042
  9. FILGRASTIM [Concomitant]
     Dosage: AFTER THE SECOND CYCLE OF  (R)-DHAP.
     Route: 058

REACTIONS (3)
  - Hypokalaemia [Unknown]
  - Renal failure [Unknown]
  - Infection [Unknown]
